FAERS Safety Report 5376287-8 (Version None)
Quarter: 2007Q2

REPORT INFORMATION
  Report Type: 
  Country: None (occurrence: None)
  Receive Date: 20070627
  Receipt Date: 20070627
  Transmission Date: 20071010
  Serious: Yes (Other)
  Sender: FDA-Public Use
  Company Number: None

PATIENT
  Age: 48 Year
  Sex: Female
  Weight: 70.3 kg

DRUGS (6)
  1. MULTI-VITAMIN [Suspect]
     Indication: MULTI-VITAMIN DEFICIENCY
     Dosage: 10ML IN 500ML D5W IV
     Route: 042
  2. RANITIDINE [Concomitant]
  3. CLOBETASOL PROPIONATE [Concomitant]
  4. TIGECYCLINE [Concomitant]
  5. ONDANSETRON [Concomitant]
  6. CLOTRIMAZOLE TROCHE [Concomitant]

REACTIONS (2)
  - INFUSION RELATED REACTION [None]
  - MUSCLE SPASMS [None]
